FAERS Safety Report 12435550 (Version 1)
Quarter: 2016Q2

REPORT INFORMATION
  Report Type: Spontaneous
  Country: US (occurrence: US)
  Receive Date: 20160603
  Receipt Date: 20160603
  Transmission Date: 20160815
  Serious: No
  Sender: FDA-Public Use
  Company Number: US-ROCHE-1709269

PATIENT
  Sex: Female

DRUGS (32)
  1. ACTEMRA [Suspect]
     Active Substance: TOCILIZUMAB
     Indication: PRODUCT USED FOR UNKNOWN INDICATION
     Route: 065
  2. XANAX [Concomitant]
     Active Substance: ALPRAZOLAM
     Route: 048
  3. RESTASIS [Concomitant]
     Active Substance: CYCLOSPORINE
     Route: 065
  4. FOLIC ACID. [Concomitant]
     Active Substance: FOLIC ACID
     Dosage: 1 TABLET AT BEDTIME
     Route: 048
  5. ZADITOR [Concomitant]
     Active Substance: KETOTIFEN FUMARATE
     Route: 065
  6. DELTASONE (UNITED STATES) [Concomitant]
     Route: 048
  7. SYSTANE (UNITED STATES) [Concomitant]
     Dosage: 1 DROP AT BEDTIME DAILY
     Route: 065
  8. PROTOPIC [Concomitant]
     Active Substance: TACROLIMUS
     Dosage: APPLY TO AFFECTED AREA
     Route: 065
  9. PROTOPIC [Concomitant]
     Active Substance: TACROLIMUS
     Dosage: APPLY TO AFFECTED AREA
     Route: 065
  10. ANTIVERT (UNITED STATES) [Concomitant]
  11. MINOCIN [Concomitant]
     Active Substance: MINOCYCLINE HYDROCHLORIDE
     Route: 048
  12. DYAZIDE [Concomitant]
     Active Substance: HYDROCHLOROTHIAZIDE\TRIAMTERENE
  13. TYLENOL [Concomitant]
     Active Substance: ACETAMINOPHEN
     Dosage: 2 TABLETS AT BEDTIME
     Route: 065
  14. ISOPTO TEARS [Concomitant]
     Active Substance: HYPROMELLOSE 2910 (4000 MPA.S)
     Route: 065
  15. ENBREL [Concomitant]
     Active Substance: ETANERCEPT
  16. PROAIR (ALBUTEROL) [Concomitant]
  17. PROVENTIL NEBULIZER [Concomitant]
     Dosage: 2.5 MG/3 ML
     Route: 065
  18. CELEXA [Concomitant]
     Active Substance: CITALOPRAM HYDROBROMIDE
     Dosage: 2 TABLETS/DAILY
     Route: 048
  19. NORCO [Concomitant]
     Active Substance: ACETAMINOPHEN\HYDROCODONE BITARTRATE
     Dosage: 5/325 MG TABLET
     Route: 048
  20. LAMICTAL [Concomitant]
     Active Substance: LAMOTRIGINE
     Dosage: 1 AT BEDTIME
     Route: 048
  21. SYNTHROID [Concomitant]
     Active Substance: LEVOTHYROXINE SODIUM
     Route: 065
  22. ZOFRAN [Concomitant]
     Active Substance: ONDANSETRON HYDROCHLORIDE
     Route: 048
  23. ZANAFLEX [Concomitant]
     Active Substance: TIZANIDINE HYDROCHLORIDE
     Dosage: AT BEDTIME
     Route: 048
  24. RETIN-A [Concomitant]
     Active Substance: TRETINOIN
     Dosage: APPLY TO AFFECTED AREA AT BEDTIME DAILY
     Route: 065
  25. ZYRTEC [Concomitant]
     Active Substance: CETIRIZINE HYDROCHLORIDE
     Route: 048
  26. VENTOLIN [Concomitant]
     Active Substance: ALBUTEROL SULFATE
     Dosage: 2 PUFFS
     Route: 065
  27. RUBRAMIN PC [Concomitant]
     Active Substance: CYANOCOBALAMIN
     Dosage: 1000 MG/ML
     Route: 065
  28. RITUXAN [Concomitant]
     Active Substance: RITUXIMAB
     Dosage: 10 MG/ML IN SODIUM CHLORIDE
     Route: 065
  29. LYRICA [Concomitant]
     Active Substance: PREGABALIN
     Dosage: AT BEDTIME
     Route: 048
  30. GEODON [Concomitant]
     Active Substance: ZIPRASIDONE HYDROCHLORIDE\ZIPRASIDONE MESYLATE
  31. PRILOSEC [Concomitant]
     Active Substance: OMEPRAZOLE MAGNESIUM
     Route: 048
  32. AMPICILLIN [Concomitant]
     Active Substance: AMPICILLIN

REACTIONS (1)
  - Drug hypersensitivity [Unknown]
